FAERS Safety Report 5650294-X (Version None)
Quarter: 2008Q1

REPORT INFORMATION
  Report Type: 
  Country: None (occurrence: None)
  Receive Date: 20080131
  Receipt Date: 20071201
  Transmission Date: 20080703
  Serious: No
  Sender: FDA-Public Use
  Company Number: US200712000309

PATIENT
  Age: 65 Year
  Sex: Female

DRUGS (1)
  1. BYETTA [Suspect]
     Dosage: 10 UG, SUBCUTANEOUS ; SUBCUTANEOUS
     Route: 058
     Dates: start: 20071122, end: 20071122

REACTIONS (3)
  - INCORRECT DOSE ADMINISTERED [None]
  - MALAISE [None]
  - NAUSEA [None]
